FAERS Safety Report 14502548 (Version 1)
Quarter: 2018Q1

REPORT INFORMATION
  Report Type: Spontaneous
  Country: FR (occurrence: FR)
  Receive Date: 20180208
  Receipt Date: 20180208
  Transmission Date: 20180509
  Serious: Yes (Hospitalization)
  Sender: FDA-Public Use
  Company Number: FR-SUN PHARMACEUTICAL INDUSTRIES LTD-2018RR-162645

PATIENT
  Age: 45 Year
  Sex: Female

DRUGS (5)
  1. IBUPROFENE [Suspect]
     Active Substance: IBUPROFEN
     Indication: INTENTIONAL OVERDOSE
     Dosage: NP ()
     Route: 048
     Dates: start: 20171127, end: 20171127
  2. DOXYCYCLINE BASE [Suspect]
     Active Substance: DOXYCYCLINE
     Indication: CYST
     Dosage: NP ()
     Route: 048
     Dates: start: 201711, end: 20171127
  3. EFFEXOR [Suspect]
     Active Substance: VENLAFAXINE HYDROCHLORIDE
     Indication: DEPRESSION
     Dosage: NP ()
     Route: 048
     Dates: start: 20171127, end: 20171127
  4. PARACETAMOL [Suspect]
     Active Substance: ACETAMINOPHEN
     Indication: INTENTIONAL OVERDOSE
     Dosage: 42 G
     Route: 048
     Dates: start: 20171127, end: 20171127
  5. AMOXICILLINE [Suspect]
     Active Substance: AMOXICILLIN
     Indication: INTENTIONAL OVERDOSE
     Dosage: 1 BOX
     Route: 048
     Dates: start: 20171127, end: 20171127

REACTIONS (2)
  - Intentional overdose [None]
  - Acute generalised exanthematous pustulosis [Recovered/Resolved]

NARRATIVE: CASE EVENT DATE: 20171129
